FAERS Safety Report 4765468-X (Version None)
Quarter: 2005Q3

REPORT INFORMATION
  Report Type: 
  Country: None (occurrence: None)
  Receive Date: 20050906
  Receipt Date: 20050822
  Transmission Date: 20060218
  Serious: Yes (Death)
  Sender: FDA-Public Use
  Company Number: FR-2005-017790

PATIENT
  Age: 82 Year
  Sex: Male

DRUGS (11)
  1. SOTALOL HCL [Suspect]
     Indication: HYPERTENSION
     Dosage: 1X/DAY
     Dates: end: 20050204
  2. DIGOXIN [Suspect]
     Indication: CARDIAC FAILURE
     Dosage: 0.5 MG, , 1X/DAY
  3. ARICEPT [Suspect]
     Indication: DEMENTIA ALZHEIMER'S TYPE
     Dosage: 1X/DAY
  4. LASILIX [Concomitant]
  5. APROVEL (IRBESARTAN) [Concomitant]
  6. FRAXIPARINE  /SCH/(NADROPARIN CALCIUM) [Concomitant]
  7. NOCTRAN 10 (ACEPROMETHAZINE, CLORAZEPATE DIPOTASSIUM, ACEPROMAZINE) [Concomitant]
  8. ZYLORIC ^FAES^ [Concomitant]
  9. FONZYLANE (BUFLOMEDIL  HYDROCHLORIDE) [Concomitant]
  10. TQRDYFERON  /SCH/(FERROUS SULFATE, IRON) [Concomitant]
  11. DOPAMINE HCL [Concomitant]

REACTIONS (3)
  - BRADYCARDIA [None]
  - HYPOTENSION [None]
  - SUDDEN DEATH [None]
